FAERS Safety Report 8133055-1 (Version None)
Quarter: 2012Q1

REPORT INFORMATION
  Report Type: 
  Country: None (occurrence: None)
  Receive Date: 20120213
  Receipt Date: 20120201
  Transmission Date: 20120608
  Serious: Yes (Other)
  Sender: FDA-Public Use
  Company Number: PHHY2012DE008747

PATIENT
  Sex: Female

DRUGS (1)
  1. FEMARA [Suspect]
     Dosage: 2.5 M/DAY
     Route: 048
     Dates: start: 20070101

REACTIONS (4)
  - HUMERUS FRACTURE [None]
  - FALL [None]
  - BONE DENSITY DECREASED [None]
  - WRIST FRACTURE [None]
